FAERS Safety Report 7921441-1 (Version None)
Quarter: 2011Q4

REPORT INFORMATION
  Report Type: 
  Country: None (occurrence: None)
  Receive Date: 20111117
  Receipt Date: 20111111
  Transmission Date: 20120403
  Serious: Yes (Death, Hospitalization)
  Sender: FDA-Public Use
  Company Number: TW-CELGENEUS-153-CCAZA-11100654

PATIENT
  Sex: Male
  Weight: 75.9 kg

DRUGS (6)
  1. AZACITIDINE [Suspect]
     Indication: MYELODYSPLASTIC SYNDROME
     Dosage: 75 MILLIGRAM/SQ. METER
     Route: 058
     Dates: start: 20110725, end: 20110731
  2. DOXAZOSIN MESYLATE [Concomitant]
     Indication: HYPERTENSION
     Route: 048
     Dates: start: 20111005, end: 20111005
  3. DUTASTERIDE [Concomitant]
     Indication: BENIGN PROSTATIC HYPERPLASIA
     Route: 048
     Dates: start: 20111005, end: 20111010
  4. PROPIVERINE [Concomitant]
     Route: 065
  5. AZACITIDINE [Suspect]
     Dosage: 75 MILLIGRAM/SQ. METER
     Route: 058
     Dates: start: 20110920, end: 20110926
  6. ALLOPURINOL [Concomitant]
     Indication: GOUT
     Route: 048
     Dates: start: 20111005, end: 20111007

REACTIONS (21)
  - RESPIRATORY FAILURE [None]
  - HEPATITIS B CORE ANTIBODY POSITIVE [None]
  - HEPATIC FAILURE [None]
  - HEPATOTOXICITY [None]
  - HEPATITIS [None]
  - LEPTOSPIROSIS [None]
  - HEPATIC ENCEPHALOPATHY [None]
  - FUNGAL INFECTION [None]
  - HAEMODIALYSIS [None]
  - RENAL FAILURE ACUTE [None]
  - FEBRILE NEUTROPENIA [None]
  - PYREXIA [None]
  - THROMBOCYTOPENIA [None]
  - HEPATITIS B SURFACE ANTIBODY POSITIVE [None]
  - FLUID OVERLOAD [None]
  - LUNG INFECTION [None]
  - EPISTAXIS [None]
  - PANCREATITIS ACUTE [None]
  - HAEMOGLOBIN DECREASED [None]
  - HEPATORENAL SYNDROME [None]
  - COAGULOPATHY [None]
